FAERS Safety Report 11942794 (Version 1)
Quarter: 2016Q1

REPORT INFORMATION
  Report Type: Spontaneous
  Country: US (occurrence: US)
  Receive Date: 20160125
  Receipt Date: 20160125
  Transmission Date: 20160526
  Serious: No
  Sender: FDA-Public Use
  Company Number: US-UNITED THERAPEUTICS-UNT-2015-009352

PATIENT
  Age: 56 Year
  Sex: Female
  Weight: 104.31 kg

DRUGS (5)
  1. REMODULIN [Suspect]
     Active Substance: TREPROSTINIL
     Dosage: UNK
     Dates: start: 20130117
  2. TRACLEER [Suspect]
     Active Substance: BOSENTAN
     Indication: PRODUCT USED FOR UNKNOWN INDICATION
     Route: 065
  3. OPSUMIT [Concomitant]
     Active Substance: MACITENTAN
     Indication: PRODUCT USED FOR UNKNOWN INDICATION
  4. REMODULIN [Suspect]
     Active Substance: TREPROSTINIL
     Indication: PULMONARY ARTERIAL HYPERTENSION
     Dosage: 0.040 ?G/KG/MIN, CONTINUING
     Route: 058
     Dates: start: 20130103
  5. REVATIO [Concomitant]
     Active Substance: SILDENAFIL CITRATE
     Indication: PRODUCT USED FOR UNKNOWN INDICATION

REACTIONS (11)
  - Infusion site bruising [Unknown]
  - Infusion site discharge [Unknown]
  - Infusion site erythema [Unknown]
  - Infusion site infection [Unknown]
  - Seasonal allergy [Recovering/Resolving]
  - Anaemia [Unknown]
  - Infusion site haemorrhage [Not Recovered/Not Resolved]
  - Headache [Unknown]
  - Infusion site pain [Recovering/Resolving]
  - Nasal congestion [Unknown]
  - Infusion site mass [Unknown]

NARRATIVE: CASE EVENT DATE: 201506
